FAERS Safety Report 6432258-1 (Version None)
Quarter: 2009Q4

REPORT INFORMATION
  Report Type: 
  Country: None (occurrence: None)
  Receive Date: 20091109
  Receipt Date: 20091027
  Transmission Date: 20100525
  Serious: Yes (Other)
  Sender: FDA-Public Use
  Company Number: PHHY2009CA47070

PATIENT
  Sex: Male

DRUGS (1)
  1. EXJADE [Suspect]
     Indication: B-CELL LYMPHOMA
     Dosage: 250 MG, QD
     Route: 048
     Dates: start: 20091001

REACTIONS (2)
  - ASTHENIA [None]
  - MALAISE [None]
